FAERS Safety Report 6829187-8 (Version None)
Quarter: 2010Q3

REPORT INFORMATION
  Report Type: 
  Country: None (occurrence: None)
  Receive Date: 20100709
  Receipt Date: 20070306
  Transmission Date: 20110219
  Serious: No
  Sender: FDA-Public Use
  Company Number: US-PFIZER INC-2007017793

PATIENT
  Sex: Female
  Weight: 70.31 kg

DRUGS (8)
  1. CHANTIX [Suspect]
     Indication: SMOKING CESSATION THERAPY
     Dates: start: 20070306
  2. INDERAL LA [Concomitant]
     Indication: ESSENTIAL TREMOR
  3. TRILEPTAL [Concomitant]
     Indication: BIPOLAR DISORDER
  4. KLONOPIN [Concomitant]
     Indication: ANXIETY
  5. OPIUM ALKALOIDS AND DERIVATIVES [Concomitant]
     Indication: BRONCHITIS
  6. GUAIFENESIN/PHENYLEPHRINE [Concomitant]
     Indication: BRONCHITIS
  7. AVELOX [Concomitant]
     Indication: BRONCHITIS
  8. ADVAIR DISKUS 100/50 [Concomitant]
     Indication: BRONCHITIS

REACTIONS (1)
  - RASH [None]
